FAERS Safety Report 8357627-4 (Version None)
Quarter: 2012Q2

REPORT INFORMATION
  Report Type: 
  Country: None (occurrence: None)
  Receive Date: 20120514
  Receipt Date: 20120510
  Transmission Date: 20120825
  Serious: No
  Sender: FDA-Public Use
  Company Number: US-PFIZER INC-2012114883

PATIENT
  Sex: Female
  Weight: 83.9 kg

DRUGS (5)
  1. LYRICA [Concomitant]
     Indication: FIBROMYALGIA
     Dosage: 200 MG, 2X/DAY
     Dates: start: 20040101
  2. OXYCODONE [Concomitant]
     Indication: PAIN
     Dosage: 30 MG, 5X/DAY
     Dates: start: 20040101
  3. CHANTIX [Suspect]
     Indication: SMOKING CESSATION THERAPY
     Dosage: 0.5 MG, DAILY
     Route: 048
     Dates: start: 20120416, end: 20120419
  4. GABAPENTIN [Concomitant]
     Indication: PERIPHERAL NERVE INJURY
     Dosage: 800 MG, 3X/DAY
     Dates: start: 20060101
  5. METFORMIN HYDROCHLORIDE [Concomitant]
     Indication: DIABETES MELLITUS
     Dosage: 1000 MG, 2X/DAY
     Dates: start: 20030101

REACTIONS (5)
  - MIGRAINE [None]
  - NAUSEA [None]
  - FEELING ABNORMAL [None]
  - ABDOMINAL DISCOMFORT [None]
  - DIZZINESS [None]
